FAERS Safety Report 6577597-9 (Version None)
Quarter: 2010Q1

REPORT INFORMATION
  Report Type: 
  Country: None (occurrence: None)
  Receive Date: 20100211
  Receipt Date: 20100128
  Transmission Date: 20100710
  Serious: Yes (Other)
  Sender: FDA-Public Use
  Company Number: PHHY2010DE06956

PATIENT
  Sex: Male

DRUGS (5)
  1. FORAIR [Suspect]
     Indication: CHRONIC OBSTRUCTIVE PULMONARY DISEASE
     Dosage: 2-3 PUFFS A DAY
     Dates: start: 20091101
  2. SPIRIVIVA [Concomitant]
  3. ISCOVER [Concomitant]
     Dosage: TID
  4. CALCIUM [Concomitant]
  5. FLUORIDE [Concomitant]

REACTIONS (3)
  - HYPERTHYROIDISM [None]
  - IRON DEFICIENCY [None]
  - MICROCYTIC ANAEMIA [None]
